FAERS Safety Report 8806617 (Version 2)
Quarter: 2012Q4

REPORT INFORMATION
  Report Type: 
  Country: US (occurrence: US)
  Receive Date: 20120925
  Receipt Date: 20121226
  Transmission Date: 20130627
  Serious: Yes (Hospitalization)
  Sender: FDA-Public Use
  Company Number: US-BAYER-2012-098272

PATIENT
  Age: 50 Year
  Sex: Female

DRUGS (5)
  1. YAZ [Suspect]
  2. YASMIN [Suspect]
  3. TRAZODONE [Concomitant]
  4. PREVACID [Concomitant]
  5. OCELLA [Suspect]

REACTIONS (2)
  - Injury [None]
  - Pulmonary embolism [Recovered/Resolved]
